FAERS Safety Report 5075816-1 (Version None)
Quarter: 2006Q3

REPORT INFORMATION
  Report Type: 
  Country: None (occurrence: None)
  Receive Date: 20060809
  Receipt Date: 20060802
  Transmission Date: 20061208
  Serious: Yes (Life-Threatening, Hospitalization)
  Sender: FDA-Public Use
  Company Number: ES-GLAXOSMITHKLINE-B0433252A

PATIENT
  Age: 71 Year
  Sex: Male
  Weight: 78 kg

DRUGS (7)
  1. AUGMENTIN [Suspect]
     Indication: BURSITIS
     Route: 048
     Dates: start: 20060403, end: 20060508
  2. ESTOMIL [Suspect]
     Indication: DRUG USE FOR UNKNOWN INDICATION
     Dosage: 15MG PER DAY
     Route: 048
     Dates: start: 20060408, end: 20060508
  3. DICLOFENAC [Suspect]
     Indication: DRUG USE FOR UNKNOWN INDICATION
     Dosage: 100MG PER DAY
     Route: 048
     Dates: start: 20060403, end: 20060415
  4. ENANTYUM [Suspect]
     Indication: DRUG USE FOR UNKNOWN INDICATION
     Dosage: 75MG PER DAY
     Route: 048
  5. URBASON [Suspect]
     Indication: DRUG USE FOR UNKNOWN INDICATION
     Dosage: 40MG SINGLE DOSE
     Route: 030
  6. POLARAMINE [Suspect]
     Indication: DRUG USE FOR UNKNOWN INDICATION
     Route: 065
  7. DIOVAN HCT [Suspect]
     Indication: ESSENTIAL HYPERTENSION
     Route: 048
     Dates: start: 20050606, end: 20060519

REACTIONS (3)
  - DRUG INTERACTION [None]
  - HEPATITIS [None]
  - RENAL FAILURE ACUTE [None]
